FAERS Safety Report 24744200 (Version 1)
Quarter: 2024Q4

REPORT INFORMATION
  Report Type: Spontaneous
  Country: US (occurrence: None)
  Receive Date: 20241216
  Receipt Date: 20241216
  Transmission Date: 20250114
  Serious: Yes (Hospitalization)
  Sender: Public
  Company Number: None

PATIENT
  Age: 70 Year
  Sex: Female
  Weight: 53.1 kg

DRUGS (12)
  1. RECLAST [Suspect]
     Active Substance: ZOLEDRONIC ACID
     Indication: Bone density decreased
     Dates: start: 20241209, end: 20241209
  2. FLOVENT [Concomitant]
     Active Substance: FLUTICASONE PROPIONATE
  3. ALBUTEROL [Concomitant]
     Active Substance: ALBUTEROL
  4. FLUDROCORTISONE [Concomitant]
     Active Substance: FLUDROCORTISONE
  5. DEXAMETHASONE SODIUM PHOSPHATE [Concomitant]
     Active Substance: DEXAMETHASONE SODIUM PHOSPHATE
  6. EPIPEN [Concomitant]
     Active Substance: EPINEPHRINE
  7. TRAMADOL [Concomitant]
     Active Substance: TRAMADOL
  8. FOLIC ACID [Concomitant]
     Active Substance: FOLIC ACID
  9. HYDROCORTISONE [Concomitant]
     Active Substance: HYDROCORTISONE
  10. MAGNESIUM GLYCINATE [Concomitant]
     Active Substance: MAGNESIUM GLYCINATE
  11. VITAMIN D NOS [Concomitant]
     Active Substance: CHOLECALCIFEROL\ERGOCALCIFEROL
  12. TYLENOL [Concomitant]
     Active Substance: ACETAMINOPHEN

REACTIONS (6)
  - Pyrexia [None]
  - Tremor [None]
  - Hypotension [None]
  - Depressed level of consciousness [None]
  - Adrenocortical insufficiency acute [None]
  - Infusion related reaction [None]

NARRATIVE: CASE EVENT DATE: 20241209
